FAERS Safety Report 9887551 (Version 1)
Quarter: 2014Q1

REPORT INFORMATION
  Report Type: Spontaneous
  Country: US (occurrence: US)
  Receive Date: 20140211
  Receipt Date: 20140211
  Transmission Date: 20141002
  Serious: Yes (Other)
  Sender: FDA-Public Use
  Company Number: US-AMGEN-USASP2014008503

PATIENT
  Age: 68 Year
  Sex: Male

DRUGS (8)
  1. XGEVA [Suspect]
     Indication: PRODUCT USED FOR UNKNOWN INDICATION
     Dosage: UNK UNK, QMO
     Route: 065
  2. CALCIUM                            /00060701/ [Concomitant]
  3. VITAMIN D                          /00107901/ [Concomitant]
  4. TRELSTAR LA [Concomitant]
  5. CRESTOR [Concomitant]
     Dosage: 10 MG, UNK
  6. ABIRATERONE ACETATE [Concomitant]
     Dosage: 250 MG, QD
  7. WELCHOL [Concomitant]
  8. PREDNISONE                         /00044702/ [Concomitant]
     Dosage: 10 MG, UNK

REACTIONS (3)
  - Face injury [Unknown]
  - Mouth injury [Unknown]
  - Toothache [Not Recovered/Not Resolved]
